FAERS Safety Report 6550743-9 (Version None)
Quarter: 2010Q1

REPORT INFORMATION
  Report Type: 
  Country: None (occurrence: None)
  Receive Date: 20100125
  Receipt Date: 20100114
  Transmission Date: 20100710
  Serious: Yes (Hospitalization)
  Sender: FDA-Public Use
  Company Number: PHHY2010DE02498

PATIENT
  Sex: Female
  Weight: 77 kg

DRUGS (6)
  1. ALISKIREN ALI+ [Suspect]
     Indication: HYPERTENSION
     Dosage: 300 MG PER DAY
     Route: 048
     Dates: start: 20081121
  2. CONCOR [Suspect]
     Indication: HYPERTENSION
     Dosage: 10 MG PER DAY
     Route: 048
     Dates: start: 20061019
  3. PLATELET AGGREGATION INHIBITORS [Concomitant]
     Dosage: UNK
  4. LEVOTHYROXINE SODIUM [Concomitant]
     Indication: HYPOTHYROIDISM
     Dosage: 125 UG, PER DAY
     Route: 048
     Dates: start: 20080923
  5. ALLOPURINOL [Concomitant]
     Indication: HYPERURICAEMIA
     Dosage: 150 MG PER DAY
     Route: 048
     Dates: start: 20070416
  6. SIMVASTATIN [Concomitant]
     Indication: HYPERLIPIDAEMIA
     Dosage: 20 MG, PER DAY
     Route: 048
     Dates: start: 20071231

REACTIONS (3)
  - BREAST CANCER [None]
  - HYPERTENSIVE CRISIS [None]
  - MASTECTOMY [None]
